FAERS Safety Report 9358922 (Version 1)
Quarter: 2013Q2

REPORT INFORMATION
  Report Type: Spontaneous
  Country: US (occurrence: US)
  Receive Date: 20130620
  Receipt Date: 20130620
  Transmission Date: 20140414
  Serious: No
  Sender: FDA-Public Use
  Company Number: US-009507513-1306USA009055

PATIENT
  Age: 79 Year
  Sex: Male

DRUGS (3)
  1. ISENTRESS [Suspect]
     Indication: HIV INFECTION
     Dosage: 400 MG, BID
     Route: 048
     Dates: start: 20080617
  2. CORTISONE [Concomitant]
  3. EPZICOM [Concomitant]

REACTIONS (1)
  - Hallucination [Not Recovered/Not Resolved]
